FAERS Safety Report 19926242 (Version 1)
Quarter: 2021Q4

REPORT INFORMATION
  Report Type: Spontaneous
  Country: CA (occurrence: CA)
  Receive Date: 20211006
  Receipt Date: 20211006
  Transmission Date: 20220303
  Serious: Yes (Hospitalization)
  Sender: FDA-Public Use
  Company Number: CA-TEVA-2021-CA-1961673

PATIENT
  Age: 82 Year
  Sex: Female
  Weight: 61 kg

DRUGS (16)
  1. SPIRONOLACTONE [Suspect]
     Active Substance: SPIRONOLACTONE
     Route: 048
  2. ATORVASTATIN [Concomitant]
     Active Substance: ATORVASTATIN
  3. BISOPROLOL [Concomitant]
     Active Substance: BISOPROLOL
  4. CANDESARTAN [Concomitant]
     Active Substance: CANDESARTAN
  5. CEPHALEXIN [Concomitant]
     Active Substance: CEPHALEXIN
  6. CLOPIDOGREL [Concomitant]
     Active Substance: CLOPIDOGREL BISULFATE
  7. DILTIAZEM [Concomitant]
     Active Substance: DILTIAZEM
  8. ELIQUIS [Concomitant]
     Active Substance: APIXABAN
  9. LEVOTHYROXINE [Concomitant]
     Active Substance: LEVOTHYROXINE
  10. LORAZEPAM [Concomitant]
     Active Substance: LORAZEPAM
  11. OMEPRAZOLE [Concomitant]
     Active Substance: OMEPRAZOLE
  12. PREGABALIN [Concomitant]
     Active Substance: PREGABALIN
  13. ALBUTEROL [Concomitant]
     Active Substance: ALBUTEROL
  14. TRELEGY ELLIPTA [Concomitant]
     Active Substance: FLUTICASONE FUROATE\UMECLIDINIUM BROMIDE\VILANTEROL TRIFENATATE
     Route: 065
  15. TYLENOL W/CODEINE NO.2 [Concomitant]
  16. PREGABALIN [Concomitant]
     Active Substance: PREGABALIN

REACTIONS (2)
  - Acute kidney injury [Recovered/Resolved]
  - Hyperkalaemia [Recovered/Resolved]
